FAERS Safety Report 7666704-2 (Version None)
Quarter: 2011Q3

REPORT INFORMATION
  Report Type: 
  Country: None (occurrence: None)
  Receive Date: 20110806
  Receipt Date: 20110629
  Transmission Date: 20111222
  Serious: Yes (Hospitalization)
  Sender: FDA-Public Use
  Company Number: US-ABBOTT-11P-163-0835389-00

PATIENT
  Sex: Male

DRUGS (2)
  1. COPAXONE [Suspect]
     Indication: MULTIPLE SCLEROSIS
     Route: 058
     Dates: start: 20110215
  2. NIASPAN [Suspect]
     Indication: BLOOD CHOLESTEROL INCREASED

REACTIONS (2)
  - VOMITING [None]
  - FALL [None]
